FAERS Safety Report 10067265 (Version 1)
Quarter: 2014Q2

REPORT INFORMATION
  Report Type: Spontaneous
  Country: US (occurrence: None)
  Receive Date: 20140408
  Receipt Date: 20140408
  Transmission Date: 20141212
  Serious: Yes (Life-Threatening, Disabling)
  Sender: FDA-Public Use
  Company Number: None

PATIENT
  Age: 45 Year
  Sex: Female
  Weight: 106.6 kg

DRUGS (1)
  1. GENERIC ADDERALL XR [Suspect]
     Indication: ILL-DEFINED DISORDER
     Route: 048
     Dates: start: 20140220, end: 20140320

REACTIONS (6)
  - Off label use [None]
  - Drug ineffective [None]
  - Migraine [None]
  - Convulsion [None]
  - Product substitution issue [None]
  - Product quality issue [None]
